FAERS Safety Report 16103805 (Version 1)
Quarter: 2019Q1

REPORT INFORMATION
  Report Type: Spontaneous
  Country: IT (occurrence: IT)
  Receive Date: 20190322
  Receipt Date: 20190322
  Transmission Date: 20190418
  Serious: Yes (Hospitalization, Other)
  Sender: FDA-Public Use
  Company Number: IT-AUROBINDO-AUR-APL-2019-014457

PATIENT

DRUGS (4)
  1. ANIDULAFUNGIN [Suspect]
     Active Substance: ANIDULAFUNGIN
     Indication: CANDIDA SEPSIS
     Dosage: 100 MILLIGRAM, ONCE A DAY
     Route: 042
     Dates: start: 20190208, end: 20190225
  2. FUROSEMIDE. [Concomitant]
     Active Substance: FUROSEMIDE
     Indication: HYPERTENSION
     Dosage: 20 MILLIGRAM, ONCE A DAY
     Route: 042
     Dates: start: 20190201, end: 20190304
  3. MEROPENEM POWDER FOR SOLUTION FOR INFUSION [Suspect]
     Active Substance: MEROPENEM
     Indication: ACINETOBACTER INFECTION
     Dosage: 3 GRAM, ONCE A DAY
     Route: 042
     Dates: start: 20190211, end: 20190226
  4. CETIRIZINE [Concomitant]
     Active Substance: CETIRIZINE HYDROCHLORIDE
     Indication: PRODUCT USED FOR UNKNOWN INDICATION
     Dosage: 10 MILLIGRAM, ONCE A DAY
     Route: 048
     Dates: start: 20190218, end: 20190304

REACTIONS (2)
  - Bone marrow toxicity [Recovering/Resolving]
  - Pancytopenia [Recovering/Resolving]

NARRATIVE: CASE EVENT DATE: 20190225
